FAERS Safety Report 7242848-4 (Version None)
Quarter: 2011Q1

REPORT INFORMATION
  Report Type: 
  Country: None (occurrence: None)
  Receive Date: 20110125
  Receipt Date: 20110119
  Transmission Date: 20110831
  Serious: Yes (Other)
  Sender: FDA-Public Use
  Company Number: SE-PFIZER INC-2010114641

PATIENT
  Age: 64 Year
  Sex: Female
  Weight: 70 kg

DRUGS (7)
  1. CALCICHEW-D3 [Concomitant]
     Dosage: UNK
     Dates: start: 20050101
  2. MICROLAX [Concomitant]
     Dosage: UNK
  3. BETOLVEX [Concomitant]
     Dosage: 1 MG, UNK
     Dates: start: 20050101
  4. INOLAXOL [Concomitant]
     Dosage: UNK
  5. LIPANTHYL [Concomitant]
     Dosage: 200 MG, UNK
     Dates: start: 20080101
  6. TOVIAZ [Suspect]
     Indication: NEUROGENIC BLADDER
     Dosage: 4 MG, 1X/DAY
     Route: 048
     Dates: start: 20100911, end: 20100914
  7. VESICARE [Interacting]
     Indication: MICTURITION URGENCY
     Dosage: 5 MG, UNK
     Dates: start: 20070101, end: 20100910

REACTIONS (8)
  - COUGH [None]
  - CONSTIPATION [None]
  - DRUG INTERACTION [None]
  - HEART RATE INCREASED [None]
  - FATIGUE [None]
  - MALAISE [None]
  - PALPITATIONS [None]
  - HEADACHE [None]
